FAERS Safety Report 5130985-X (Version None)
Quarter: 2006Q4

REPORT INFORMATION
  Report Type: 
  Country: None (occurrence: None)
  Receive Date: 20060829
  Receipt Date: 20060510
  Transmission Date: 20070319
  Serious: Yes (Death)
  Sender: FDA-Public Use
  Company Number: PHEH2006US06164

PATIENT
  Age: 73 Year
  Sex: Male

DRUGS (1)
  1. EXJADE [Suspect]
     Indication: LEUKAEMIA
     Dosage: 2250 MG, QD, ORAL
     Route: 048
     Dates: start: 20060116

REACTIONS (2)
  - LEUKAEMIA [None]
  - SEPSIS [None]
